FAERS Safety Report 8612294-7 (Version None)
Quarter: 2012Q3

REPORT INFORMATION
  Report Type: 
  Country: None (occurrence: None)
  Receive Date: 20120810
  Receipt Date: 20120810
  Transmission Date: 20120928
  Serious: No
  Sender: FDA-Public Use
  Company Number: None

PATIENT
  Sex: Male
  Weight: 159.2 kg

DRUGS (1)
  1. HYDROCHLOROTHIAZIDE 25MG TAB [Suspect]
     Indication: HYPERTENSION
     Dosage: 25 MG DAILY PO
     Route: 048
     Dates: start: 20111123, end: 20111130

REACTIONS (3)
  - PRODUCT QUALITY ISSUE [None]
  - INFLUENZA LIKE ILLNESS [None]
  - PRODUCT SUBSTITUTION ISSUE [None]
